FAERS Safety Report 9958721 (Version 1)
Quarter: 2014Q1

REPORT INFORMATION
  Report Type: Report from Study
  Country: US (occurrence: US)
  Receive Date: 20140305
  Receipt Date: 20140305
  Transmission Date: 20141002
  Serious: No
  Sender: FDA-Public Use
  Company Number: US-ABBVIE-13P-163-1101482-00

PATIENT
  Age: 71 Year
  Sex: Female

DRUGS (12)
  1. HUMIRA [Suspect]
     Indication: PSORIASIS
     Route: 058
     Dates: start: 20130424
  2. ULTRAM [Concomitant]
     Indication: PAIN
     Dosage: AS NEEDED
  3. TYLENOL [Concomitant]
     Indication: PAIN
  4. FENOFIBRATE [Concomitant]
     Indication: BLOOD CHOLESTEROL INCREASED
     Dosage: 134MG DAILY
  5. PLAVIX [Concomitant]
     Indication: THROMBOSIS PROPHYLAXIS
     Dosage: 75MG DAILY
  6. PLETAL [Concomitant]
     Indication: CARDIAC DISORDER
  7. AVAPRO [Concomitant]
     Indication: CARDIAC DISORDER
     Dosage: 150MG DAILY
  8. BYSTOLIC [Concomitant]
     Indication: CARDIAC DISORDER
     Dosage: 5MG DAILY
  9. LASIX [Concomitant]
     Indication: CARDIAC DISORDER
  10. LASIX [Concomitant]
     Indication: FLUID RETENTION
  11. TRADJENTA [Concomitant]
     Indication: DIABETES MELLITUS
     Dosage: 5MG DAILY
  12. AMBIEN [Concomitant]
     Indication: INSOMNIA
     Dosage: AT SLEEP

REACTIONS (1)
  - Blood creatinine increased [Not Recovered/Not Resolved]
